FAERS Safety Report 14813193 (Version 1)
Quarter: 2018Q2

REPORT INFORMATION
  Report Type: Spontaneous
  Country: DE (occurrence: DE)
  Receive Date: 20180426
  Receipt Date: 20180426
  Transmission Date: 20180711
  Serious: Yes (Other)
  Sender: FDA-Public Use
  Company Number: DE-TEVA-2018-DE-886058

PATIENT
  Age: 44 Year
  Sex: Male
  Weight: 88 kg

DRUGS (1)
  1. CIPROFLOXACIN. [Suspect]
     Active Substance: CIPROFLOXACIN
     Indication: GONORRHOEA
     Route: 048
     Dates: start: 201401

REACTIONS (16)
  - Neck pain [Unknown]
  - Drug intolerance [Unknown]
  - Fatigue [Unknown]
  - Musculoskeletal discomfort [Unknown]
  - Night sweats [Recovered/Resolved]
  - Ileus paralytic [Unknown]
  - Neuralgia [Unknown]
  - Sleep disorder [Unknown]
  - Feeling of despair [Unknown]
  - Fear of disease [Unknown]
  - Abdominal distension [Unknown]
  - Pain [Unknown]
  - Myalgia [Unknown]
  - Arthralgia [Unknown]
  - Dyspepsia [Unknown]
  - Nausea [Unknown]

NARRATIVE: CASE EVENT DATE: 201402
